FAERS Safety Report 4267662-3 (Version None)
Quarter: 2004Q1

REPORT INFORMATION
  Report Type: 
  Country: None (occurrence: None)
  Receive Date: 20040109
  Receipt Date: 20031016
  Transmission Date: 20041129
  Serious: Yes (Death, Hospitalization, Other)
  Sender: FDA-Public Use
  Company Number: PHRM2003FR02756

PATIENT
  Age: 20 Year
  Sex: Male
  Weight: 56 kg

DRUGS (7)
  1. TEGRETOL [Suspect]
     Indication: EPILEPSY
     Dosage: 200 MG, BID
     Route: 048
     Dates: end: 20030813
  2. LAMICTAL [Suspect]
     Indication: EPILEPSY
     Dosage: 200 MG PER DAY
     Route: 048
     Dates: start: 20020227, end: 20020323
  3. LAMICTAL [Suspect]
     Dosage: 250 MG PER DAY
     Dates: start: 20020324, end: 20020411
  4. LAMICTAL [Suspect]
     Dosage: 300 MG DAILY
     Dates: start: 20020412, end: 20030207
  5. LAMICTAL [Suspect]
     Dosage: 200 MG DAILY
     Dates: start: 20030208, end: 20030813
  6. KEPPRA [Suspect]
     Indication: EPILEPSY
     Dosage: 500 MG, BID
     Route: 048
     Dates: start: 20030207, end: 20030626
  7. KEPPRA [Suspect]
     Dosage: 1 G, BID
     Route: 048
     Dates: start: 20030626, end: 20030813

REACTIONS (20)
  - BLOOD BILIRUBIN INCREASED [None]
  - BLOOD CREATINE PHOSPHOKINASE INCREASED [None]
  - BLOOD CREATININE INCREASED [None]
  - BRAIN DEATH [None]
  - CONFUSIONAL STATE [None]
  - DEPRESSED LEVEL OF CONSCIOUSNESS [None]
  - DISSEMINATED INTRAVASCULAR COAGULATION [None]
  - ELECTROENCEPHALOGRAM ABNORMAL [None]
  - ENCEPHALITIS HERPES [None]
  - GRAND MAL CONVULSION [None]
  - HEART RATE INCREASED [None]
  - HEPATITIS [None]
  - HYPERKALAEMIA [None]
  - HYPERREFLEXIA [None]
  - HYPERTONIA [None]
  - MYOGLOBINURIA [None]
  - OXYGEN SATURATION DECREASED [None]
  - PROTHROMBIN LEVEL DECREASED [None]
  - RENAL FAILURE [None]
  - RHABDOMYOLYSIS [None]
